FAERS Safety Report 10503135 (Version 1)
Quarter: 2014Q4

REPORT INFORMATION
  Report Type: Spontaneous
  Country: US (occurrence: US)
  Receive Date: 20141007
  Receipt Date: 20141007
  Transmission Date: 20150528
  Serious: Yes (Other)
  Sender: FDA-Public Use
  Company Number: US-GILEAD-2014-0117410

PATIENT
  Age: 61 Year
  Sex: Female

DRUGS (3)
  1. SOVALDI [Suspect]
     Active Substance: SOFOSBUVIR
     Indication: HEPATITIS C
     Dosage: UNK
     Route: 065
     Dates: start: 2014
  2. OLYSIO [Suspect]
     Active Substance: SIMEPREVIR
     Indication: HEPATITIS C
     Dosage: 150 MG, QD
     Route: 048
     Dates: start: 2014
  3. NEUTROGENA SUNSCREEN [Concomitant]

REACTIONS (6)
  - Erythema [Not Recovered/Not Resolved]
  - Blister [Not Recovered/Not Resolved]
  - Incorrect product storage [Not Recovered/Not Resolved]
  - Photosensitivity reaction [Not Recovered/Not Resolved]
  - Off label use [Not Recovered/Not Resolved]
  - Product packaging quantity issue [Not Recovered/Not Resolved]
